FAERS Safety Report 9515440 (Version 1)
Quarter: 2013Q3

REPORT INFORMATION
  Report Type: Spontaneous
  Country: GB (occurrence: None)
  Receive Date: 20130909
  Receipt Date: 20130909
  Transmission Date: 20140515
  Serious: Yes (Other)
  Sender: FDA-Public Use
  Company Number: AUR-APL-2013-07292

PATIENT
  Age: 7 Year
  Sex: Female

DRUGS (3)
  1. AMOXICILLIN (AMOXICILLIN) [Suspect]
     Indication: PRODUCT USED FOR UNKNOWN INDICATION
     Dates: start: 20130815
  2. MEBENDAZAZOLE (MEBENDAZOLE) [Concomitant]
  3. NYSTAN (NYSTATIN) [Concomitant]

REACTIONS (1)
  - Rash pruritic [None]
